FAERS Safety Report 5805117-2 (Version None)
Quarter: 2008Q3

REPORT INFORMATION
  Report Type: 
  Country: None (occurrence: None)
  Receive Date: 20080709
  Receipt Date: 20080623
  Transmission Date: 20090109
  Serious: Yes (Hospitalization, Other)
  Sender: FDA-Public Use
  Company Number: BE-ABBOTT-08P-013-0460589-00

PATIENT
  Age: 16 Year
  Sex: Male

DRUGS (4)
  1. VALPROATE SODIUM [Suspect]
     Indication: LENNOX-GASTAUT SYNDROME
     Dosage: UNKNOWN
  2. LAMOTRIGINE [Suspect]
     Indication: LENNOX-GASTAUT SYNDROME
     Dosage: UNKNOWN
  3. VIGABATRIN [Suspect]
     Indication: LENNOX-GASTAUT SYNDROME
     Dosage: UNKNOWN
  4. PHENOBARBITAL TAB [Suspect]
     Indication: LENNOX-GASTAUT SYNDROME
     Dosage: UNKNOWN

REACTIONS (5)
  - CONVULSION [None]
  - DRUG INEFFECTIVE [None]
  - FEMUR FRACTURE [None]
  - OSTEOPOROSIS [None]
  - TENDONITIS [None]
